FAERS Safety Report 16593680 (Version 1)
Quarter: 2019Q3

REPORT INFORMATION
  Report Type: Spontaneous
  Country: DE (occurrence: DE)
  Receive Date: 20190718
  Receipt Date: 20190718
  Transmission Date: 20191004
  Serious: Yes (Death, Hospitalization, Other)
  Sender: FDA-Public Use
  Company Number: DE-SA-2019SA190054

PATIENT
  Age: 73 Year
  Sex: Male
  Weight: 100 kg

DRUGS (10)
  1. CINNARIZIN [Concomitant]
     Active Substance: CINNARIZINE
     Dosage: 20|40 MG, 1-1-1, TABLET
     Route: 048
  2. PANTOPRAZOLE [Concomitant]
     Active Substance: PANTOPRAZOLE
     Dosage: 20 MG, QD
     Route: 048
  3. INSULIN HUMAN NOS [Suspect]
     Active Substance: INSULIN HUMAN
     Dosage: 100 IE/ML,INJECTION / INFUSION SOLUTIO
     Route: 058
  4. INSULIN GLARGINE [Suspect]
     Active Substance: INSULIN GLARGINE
     Dosage: 100 IE/ML, NJECTION / INFUSION SOLUTION
     Route: 058
  5. METFORMIN [Concomitant]
     Active Substance: METFORMIN HYDROCHLORIDE
     Dosage: 500 MG, BID
     Route: 048
  6. TORASEMID [Concomitant]
     Active Substance: TORSEMIDE
     Dosage: 2.5 MG, 2-0-0
     Route: 048
  7. ATORVASTATIN [Concomitant]
     Active Substance: ATORVASTATIN
     Dosage: 20 MG, QD, 20 MG, 0-0-1
     Route: 048
  8. BISOPROLOL [Concomitant]
     Active Substance: BISOPROLOL
     Dosage: 2.5 MG, 2-0-1,TABLET
     Route: 048
  9. KALIUMCITRAT [Concomitant]
     Dosage: 1 DF, QD, 1-0-0
     Route: 048
  10. RIVAROXABAN [Concomitant]
     Active Substance: RIVAROXABAN
     Dosage: 15 MG, QD
     Route: 048

REACTIONS (2)
  - Accidental overdose [Unknown]
  - Seizure [Unknown]

NARRATIVE: CASE EVENT DATE: 20180318
